FAERS Safety Report 19889621 (Version 1)
Quarter: 2021Q3

REPORT INFORMATION
  Report Type: Spontaneous
  Country: NO (occurrence: NO)
  Receive Date: 20210928
  Receipt Date: 20210928
  Transmission Date: 20211014
  Serious: Yes (Hospitalization, Other)
  Sender: FDA-Public Use
  Company Number: NO-GLAXOSMITHKLINE-NO2021202731

PATIENT
  Age: 51 Year
  Sex: Female

DRUGS (2)
  1. ANAFRANIL [Concomitant]
     Active Substance: CLOMIPRAMINE HYDROCHLORIDE
     Indication: ANXIETY
     Dosage: 2 TABLETS.
     Route: 048
  2. AVAMYS [Suspect]
     Active Substance: FLUTICASONE FUROATE
     Indication: HYPERSENSITIVITY
     Dosage: UNK
     Route: 065
     Dates: start: 2011, end: 2020

REACTIONS (6)
  - Nasal septal operation [Unknown]
  - Rhinorrhoea [Unknown]
  - Breath sounds abnormal [Unknown]
  - Nasal septum perforation [Unknown]
  - Epistaxis [Unknown]
  - Nasal crusting [Unknown]

NARRATIVE: CASE EVENT DATE: 202012
